FAERS Safety Report 8499860-7 (Version None)
Quarter: 2012Q3

REPORT INFORMATION
  Report Type: 
  Country: None (occurrence: None)
  Receive Date: 20120710
  Receipt Date: 20120704
  Transmission Date: 20120928
  Serious: No
  Sender: FDA-Public Use
  Company Number: US-PFIZER INC-2012160682

PATIENT
  Sex: Female
  Weight: 22.676 kg

DRUGS (1)
  1. CHILDREN'S ADVIL [Suspect]
     Indication: PYREXIA
     Dosage: SINGLE DOSE

REACTIONS (4)
  - SWELLING [None]
  - PRURITUS [None]
  - SKIN DISORDER [None]
  - HYPERSENSITIVITY [None]
